FAERS Safety Report 9037053 (Version 1)
Quarter: 2013Q1

REPORT INFORMATION
  Report Type: Report from Study
  Country: US (occurrence: US)
  Receive Date: 20130129
  Receipt Date: 20130129
  Transmission Date: 20140127
  Serious: No
  Sender: FDA-Public Use
  Company Number: US-ABBOTT-12P-163-0889677-00

PATIENT
  Age: 50 Year
  Sex: Female

DRUGS (12)
  1. HUMIRA 40 MG/0.8 ML PEN [Suspect]
     Indication: CROHN^S DISEASE
     Dates: start: 20120104
  2. HYZAAR [Concomitant]
     Indication: HYPERTENSION
     Route: 048
  3. SEROQUEL [Concomitant]
     Indication: DEPRESSION
     Route: 048
  4. VISTARIL [Concomitant]
     Indication: ANXIETY
     Dosage: AS REQUIRED
     Route: 048
  5. SONATA [Concomitant]
     Indication: INSOMNIA
     Dosage: AT BEDTIME
     Route: 048
  6. CALCIUM [Concomitant]
     Indication: BLOOD CALCIUM DECREASED
  7. CLONIDINE [Concomitant]
     Indication: BLOOD PRESSURE INCREASED
  8. NYSTAN [Concomitant]
     Indication: FUNGAL INFECTION
  9. AZATHIOPRINE [Concomitant]
     Indication: RHEUMATOID ARTHRITIS
  10. PREDNISONE [Concomitant]
     Indication: CROHN^S DISEASE
  11. PREDNISONE [Concomitant]
     Indication: RHEUMATOID ARTHRITIS
  12. LORTAB [Concomitant]
     Indication: PAIN
     Dosage: 10/500MG 1-2 AS REQUIRED

REACTIONS (1)
  - Injection site pain [Recovered/Resolved]
